FAERS Safety Report 14784873 (Version 1)
Quarter: 2018Q2

REPORT INFORMATION
  Report Type: Spontaneous
  Country: FR (occurrence: FR)
  Receive Date: 20180420
  Receipt Date: 20180420
  Transmission Date: 20180711
  Serious: Yes (Other)
  Sender: FDA-Public Use
  Company Number: FR-TEVA-2018-FR-883786

PATIENT
  Age: 36 Year
  Sex: Male
  Weight: 86 kg

DRUGS (6)
  1. CLOZAPINE. [Concomitant]
     Active Substance: CLOZAPINE
     Route: 065
  2. IFOSFAMIDE EG 40 MG/ML, SOLUTION POUR PERFUSION [Suspect]
     Active Substance: IFOSFAMIDE
     Indication: SARCOMA
     Dosage: 6G SUR 12H
     Route: 065
  3. UROMITEXAN [Suspect]
     Active Substance: MESNA
     Indication: SARCOMA
     Dosage: 7.2G SUR 24H
     Route: 065
  4. VENLAFAXINE [Concomitant]
     Active Substance: VENLAFAXINE HYDROCHLORIDE
     Route: 065
  5. DOXORUBICIN TEVA [Suspect]
     Active Substance: DOXORUBICIN
     Indication: SARCOMA
     Route: 065
  6. LORAZEPAM. [Concomitant]
     Active Substance: LORAZEPAM
     Route: 065

REACTIONS (1)
  - Encephalopathy [Recovered/Resolved]
